FAERS Safety Report 7371885-4 (Version None)
Quarter: 2011Q1

REPORT INFORMATION
  Report Type: 
  Country: None (occurrence: None)
  Receive Date: 20110324
  Receipt Date: 20110314
  Transmission Date: 20110831
  Serious: Yes (Disabling)
  Sender: FDA-Public Use
  Company Number: PHHY2011AU16510

PATIENT
  Sex: Male

DRUGS (1)
  1. RITALIN LA [Suspect]
     Dosage: UNK

REACTIONS (3)
  - RESTLESSNESS [None]
  - ABNORMAL BEHAVIOUR [None]
  - DRUG INEFFECTIVE [None]
